FAERS Safety Report 13924722 (Version 1)
Quarter: 2017Q3

REPORT INFORMATION
  Report Type: Spontaneous
  Country: US (occurrence: US)
  Receive Date: 20170831
  Receipt Date: 20170831
  Transmission Date: 20171127
  Serious: Yes (Other)
  Sender: FDA-Public Use
  Company Number: US-RECKITT BENCKISER HEALTHCARE INT LIMITED-RB-93150-2017

PATIENT
  Age: 20 Month
  Sex: Male

DRUGS (3)
  1. MUCINEX [Suspect]
     Active Substance: GUAIFENESIN
     Dosage: 2.5 ML, UNK
     Route: 065
     Dates: start: 2017
  2. MUCINEX [Suspect]
     Active Substance: GUAIFENESIN
     Indication: VIRAL UPPER RESPIRATORY TRACT INFECTION
     Dosage: 5 ML, UNK
     Route: 065
     Dates: start: 2017
  3. MUCINEX [Suspect]
     Active Substance: GUAIFENESIN
     Dosage: 5 ML, SINGLE
     Route: 065
     Dates: start: 20170819

REACTIONS (2)
  - Drug administered to patient of inappropriate age [Unknown]
  - Accidental overdose [Unknown]

NARRATIVE: CASE EVENT DATE: 2017
